FAERS Safety Report 7567860-7 (Version None)
Quarter: 2011Q2

REPORT INFORMATION
  Report Type: 
  Country: None (occurrence: None)
  Receive Date: 20110623
  Receipt Date: 20110620
  Transmission Date: 20111010
  Serious: Yes (Other)
  Sender: FDA-Public Use
  Company Number: US-AMGEN-USASP2011031402

PATIENT
  Age: 50 Year
  Sex: Female

DRUGS (6)
  1. ZOFRAN [Concomitant]
     Dosage: UNK
     Dates: start: 20110525
  2. CYTOXAN [Concomitant]
     Dosage: UNK
     Dates: start: 20110525
  3. NEULASTA [Suspect]
     Indication: CHEMOTHERAPY
     Dates: start: 20110526
  4. ADRIAMYCIN PFS [Concomitant]
     Dosage: UNK
     Dates: start: 20110525
  5. COMPAZINE [Concomitant]
     Dosage: UNK
     Dates: start: 20110525
  6. PRILOSEC [Concomitant]
     Dosage: UNK
     Dates: start: 20110525

REACTIONS (2)
  - ADVERSE DRUG REACTION [None]
  - RASH GENERALISED [None]
